FAERS Safety Report 8221336-2 (Version None)
Quarter: 2012Q1

REPORT INFORMATION
  Report Type: 
  Country: None (occurrence: None)
  Receive Date: 20120307
  Receipt Date: 20110512
  Transmission Date: 20120608
  Serious: Yes (Hospitalization)
  Sender: FDA-Public Use
  Company Number: PHHY2011US41197

PATIENT
  Sex: Male

DRUGS (1)
  1. AFINITOR [Suspect]
     Indication: NEOPLASM MALIGNANT
     Dosage: 10 MG, DAILY, ORAL
     Route: 048
     Dates: start: 20110125, end: 20110429

REACTIONS (1)
  - RENAL FAILURE [None]
